FAERS Safety Report 5515834-X (Version None)
Quarter: 2007Q4

REPORT INFORMATION
  Report Type: 
  Country: None (occurrence: None)
  Receive Date: 20071114
  Receipt Date: 20071105
  Transmission Date: 20080405
  Serious: Yes (Other)
  Sender: FDA-Public Use
  Company Number: PHBS2007JP18305

PATIENT
  Age: 80 Year
  Sex: Female

DRUGS (7)
  1. RITALIN [Suspect]
     Indication: DEPRESSION
     Dosage: UNK, UNK
     Route: 048
     Dates: end: 20071019
  2. RITALIN [Suspect]
     Dosage: 20 MG/DAY
     Route: 048
     Dates: start: 20071030
  3. PEMOLINE [Concomitant]
     Dosage: 20 MG/DAY
     Route: 048
     Dates: start: 20071020, end: 20071027
  4. DEPAS [Concomitant]
     Dosage: 2 MG/DAY
     Route: 048
  5. RIZE [Concomitant]
     Dosage: 10 MG/DAY
     Route: 048
  6. DOGMATYL [Concomitant]
     Route: 048
  7. ANAFRANIL [Concomitant]
     Route: 048

REACTIONS (1)
  - DRUG WITHDRAWAL SYNDROME [None]
